FAERS Safety Report 8184705-5 (Version None)
Quarter: 2012Q1

REPORT INFORMATION
  Report Type: 
  Country: None (occurrence: None)
  Receive Date: 20120305
  Receipt Date: 20120305
  Transmission Date: 20120608
  Serious: No
  Sender: FDA-Public Use
  Company Number: None

PATIENT
  Age: 64 Year
  Sex: Male
  Weight: 73.481 kg

DRUGS (1)
  1. EYE ALLERGY RELIEF [Suspect]
     Indication: HYPERSENSITIVITY
     Dosage: ONE DROP EA. EYE
     Dates: start: 20120125, end: 20120220

REACTIONS (2)
  - VISION BLURRED [None]
  - MYDRIASIS [None]
